FAERS Safety Report 13844371 (Version 2)
Quarter: 2017Q3

REPORT INFORMATION
  Report Type: Report from Study
  Country: US (occurrence: US)
  Receive Date: 20170808
  Receipt Date: 20170831
  Transmission Date: 20171127
  Serious: Yes (Other)
  Sender: FDA-Public Use
  Company Number: US-JNJFOC-20170718507

PATIENT
  Sex: Female

DRUGS (1)
  1. STELARA [Suspect]
     Active Substance: USTEKINUMAB
     Indication: CROHN^S DISEASE
     Dosage: INTRAVENOUS INFUSION
     Route: 042
     Dates: start: 20170424

REACTIONS (8)
  - Gastric infection [Not Recovered/Not Resolved]
  - Nasopharyngitis [Unknown]
  - Secretion discharge [Unknown]
  - Peripheral swelling [Unknown]
  - Sinusitis [Unknown]
  - Vertigo [Unknown]
  - Drug dose omission [Unknown]
  - Fluid retention [Unknown]

NARRATIVE: CASE EVENT DATE: 201704
